FAERS Safety Report 20657335 (Version 2)
Quarter: 2022Q2

REPORT INFORMATION
  Report Type: Report from Study
  Country: JP (occurrence: JP)
  Receive Date: 20220331
  Receipt Date: 20220414
  Transmission Date: 20220721
  Serious: Yes (Hospitalization)
  Sender: FDA-Public Use
  Company Number: JP-Teva Takeda Yakuhin-2021-JP-001460J

PATIENT
  Age: 71 Year
  Sex: Male
  Weight: 65 kg

DRUGS (12)
  1. LANSOPRAZOLE [Suspect]
     Active Substance: LANSOPRAZOLE
     Indication: Gastrooesophageal reflux disease
     Dosage: 30 MILLIGRAM DAILY;
     Route: 048
     Dates: start: 20161020, end: 20161116
  2. LANSOPRAZOLE [Suspect]
     Active Substance: LANSOPRAZOLE
     Dosage: 15 MILLIGRAM DAILY;
     Route: 048
     Dates: start: 20161117, end: 20211102
  3. URIEF OD [Concomitant]
     Indication: Benign prostatic hyperplasia
     Dosage: 8 MILLIGRAM DAILY;
     Route: 048
     Dates: start: 20080223
  4. CHIMAPHILA UMBELLATA\MANGANESE CHLORIDE\POPULUS TREMULOIDES\SODIUM TAU [Concomitant]
     Active Substance: CHIMAPHILA UMBELLATA\MANGANESE CHLORIDE\POPULUS TREMULOIDES\SODIUM TAUROCHOLATE
     Indication: Benign prostatic hyperplasia
     Dosage: 9 DOSAGE FORMS DAILY;
     Route: 048
     Dates: start: 20131006
  5. DUTASTERIDE [Concomitant]
     Active Substance: DUTASTERIDE
     Indication: Benign prostatic hyperplasia
     Dosage: .5 MILLIGRAM DAILY;
     Route: 048
     Dates: start: 20150130
  6. AMLODIPINE [Concomitant]
     Active Substance: AMLODIPINE BESYLATE
     Indication: Hypertension
     Dosage: 15 MILLIGRAM DAILY;
     Route: 048
     Dates: start: 20121027
  7. BENZBROMARONE [Concomitant]
     Active Substance: BENZBROMARONE
     Indication: Benign prostatic hyperplasia
     Dosage: 50 MILLIGRAM DAILY;
     Route: 048
     Dates: start: 20111001
  8. TAFLUPROST\TIMOLOL [Concomitant]
     Active Substance: TAFLUPROST\TIMOLOL
     Indication: Glaucoma
     Route: 047
  9. HYALURONATE SODIUM [Concomitant]
     Active Substance: HYALURONATE SODIUM
     Indication: Glaucoma
     Route: 047
  10. CHLORAMPHENICOL/FRADIOMYCIN SULFATE/PREDNISOLONE COMBINED [Concomitant]
     Route: 062
     Dates: start: 20161111, end: 20161115
  11. CEFACLOR [Concomitant]
     Active Substance: CEFACLOR
     Route: 048
     Dates: start: 20161111, end: 20161115
  12. FEBUXOSTAT [Concomitant]
     Active Substance: FEBUXOSTAT
     Indication: Benign prostatic hyperplasia
     Dosage: 50 MILLIGRAM DAILY;
     Route: 048
     Dates: start: 20111001

REACTIONS (3)
  - Gastric polyps [Unknown]
  - Gastric polyps [Unknown]
  - Angina unstable [Recovering/Resolving]

NARRATIVE: CASE EVENT DATE: 20171010
